FAERS Safety Report 11625881 (Version 7)
Quarter: 2016Q1

REPORT INFORMATION
  Report Type: Spontaneous
  Country: US (occurrence: US)
  Receive Date: 20151013
  Receipt Date: 20160321
  Transmission Date: 20160525
  Serious: No
  Sender: FDA-Public Use
  Company Number: US-PFIZER INC-2015326153

PATIENT
  Age: 52 Year
  Sex: Male
  Weight: 95 kg

DRUGS (4)
  1. AMLODIPINE [Concomitant]
     Active Substance: AMLODIPINE BESYLATE
     Dosage: UNK
  2. SUTENT [Suspect]
     Active Substance: SUNITINIB MALATE
     Indication: RENAL CANCER STAGE IV
     Dosage: 50 MG (4 CAPSULE -12.5 MG) DAILY CYCLIC (28 DAYS ON, 14 DAYS OFF)
     Dates: start: 20150907
  3. LEVOTHYROXINE. [Concomitant]
     Active Substance: LEVOTHYROXINE
     Dosage: UNK
  4. SUTENT [Suspect]
     Active Substance: SUNITINIB MALATE
     Dosage: 50 MG, CYCLIC (2 WEEKS ON, 1 WEEK OFF)
     Dates: start: 20160118

REACTIONS (21)
  - Arthralgia [Unknown]
  - Malaise [Unknown]
  - Epigastric discomfort [Unknown]
  - Decreased appetite [Unknown]
  - Dyspepsia [Unknown]
  - Diarrhoea [Unknown]
  - Blood creatinine increased [Unknown]
  - Pain [Unknown]
  - Vomiting [Unknown]
  - White blood cell count decreased [Unknown]
  - Viral infection [Unknown]
  - Rash [Unknown]
  - Dysgeusia [Unknown]
  - Thyroid disorder [Unknown]
  - Nausea [Unknown]
  - Abdominal discomfort [Unknown]
  - Weight increased [Unknown]
  - Constipation [Unknown]
  - Skin disorder [Unknown]
  - Skin exfoliation [Unknown]
  - Hypotension [Unknown]
